FAERS Safety Report 9084033 (Version 1)
Quarter: 2013Q1

REPORT INFORMATION
  Report Type: Spontaneous
  Country: US (occurrence: US)
  Receive Date: 20130130
  Receipt Date: 20130130
  Transmission Date: 20140127
  Serious: Yes (Disabling, Other)
  Sender: FDA-Public Use
  Company Number: US-PFIZER INC-2013037546

PATIENT
  Age: 53 Year
  Sex: Female
  Weight: 86.17 kg

DRUGS (4)
  1. LYRICA [Suspect]
     Indication: LIMB DISCOMFORT
     Dosage: 150 MG, 2X/DAY
  2. LYRICA [Suspect]
     Indication: MUSCULOSKELETAL DISCOMFORT
  3. NORVASC [Concomitant]
     Indication: HYPERTENSION
     Dosage: UNK, 2X/DAY
  4. TOPROL XL [Concomitant]
     Indication: HYPERTENSION
     Dosage: UNK, DAILY

REACTIONS (4)
  - Spinal fracture [Unknown]
  - Spinal disorder [Not Recovered/Not Resolved]
  - Walking aid user [Not Recovered/Not Resolved]
  - Pain [Not Recovered/Not Resolved]
